FAERS Safety Report 13344456 (Version 5)
Quarter: 2019Q3

REPORT INFORMATION
  Report Type: Report from Study
  Country: JP (occurrence: JP)
  Receive Date: 20170317
  Receipt Date: 20190930
  Transmission Date: 20191004
  Serious: Yes (Death, Hospitalization)
  Sender: FDA-Public Use
  Company Number: JP-ACTELION-A-CH2017-150265

PATIENT
  Age: 79 Year
  Sex: Male
  Weight: 63.5 kg

DRUGS (12)
  1. PREDONINE [Suspect]
     Active Substance: PREDNISOLONE
     Dosage: 8 MG, QD
     Route: 048
     Dates: start: 20170125, end: 20181231
  2. SPIRONOLACTONE. [Concomitant]
     Active Substance: SPIRONOLACTONE
  3. OPSUMIT [Suspect]
     Active Substance: MACITENTAN
     Indication: PULMONARY ARTERIAL HYPERTENSION
     Dosage: 10 MG, QD
     Route: 048
     Dates: start: 20161112, end: 20181231
  4. PREDONINE [Suspect]
     Active Substance: PREDNISOLONE
     Indication: SCLERODERMA
     Dosage: 15 MG QD AND 10 MD QD
     Route: 048
  5. NICORANDIL [Concomitant]
     Active Substance: NICORANDIL
  6. BENET [Concomitant]
     Active Substance: RISEDRONATE SODIUM
  7. OXYGEN. [Concomitant]
     Active Substance: OXYGEN
  8. CALBLOCK [Concomitant]
     Active Substance: AZELNIDIPINE
     Indication: SCLERODERMA
     Dosage: UNK UNK, QD
  9. BAYASPIRIN [Concomitant]
     Active Substance: ASPIRIN
  10. FEBURIC [Concomitant]
     Active Substance: FEBUXOSTAT
  11. DIART [Concomitant]
     Active Substance: AZOSEMIDE
  12. CRESTOR [Concomitant]
     Active Substance: ROSUVASTATIN CALCIUM

REACTIONS (18)
  - Alanine aminotransferase increased [Recovered/Resolved]
  - Blood bilirubin increased [Recovered/Resolved]
  - Pulmonary sepsis [Fatal]
  - Aspartate aminotransferase increased [Recovered/Resolved]
  - Atrial fibrillation [Fatal]
  - Gamma-glutamyltransferase increased [Recovered/Resolved]
  - Diabetes mellitus [Recovering/Resolving]
  - Interstitial lung disease [Fatal]
  - Cardiac failure [Fatal]
  - Constipation [Recovering/Resolving]
  - Gastritis [Recovering/Resolving]
  - Pneumonia aspiration [Fatal]
  - Hepatic function abnormal [Recovered/Resolved]
  - Dyspnoea [Fatal]
  - Pneumonia bacterial [Recovering/Resolving]
  - General physical health deterioration [Fatal]
  - Scleroderma [Fatal]
  - Blood alkaline phosphatase increased [Recovered/Resolved]

NARRATIVE: CASE EVENT DATE: 20170113
